FAERS Safety Report 24208342 (Version 1)
Quarter: 2024Q3

REPORT INFORMATION
  Report Type: Spontaneous
  Country: US (occurrence: US)
  Receive Date: 20240814
  Receipt Date: 20240814
  Transmission Date: 20241017
  Serious: No
  Sender: NOVARTIS
  Company Number: US-002147023-NVSC2024US164926

PATIENT
  Age: 71 Year
  Sex: Female

DRUGS (1)
  1. LEQVIO [Suspect]
     Active Substance: INCLISIRAN SODIUM
     Indication: Product used for unknown indication
     Dosage: 1 ML (INITIAL DOSE AND 90 DAY DOSE)
     Route: 058
     Dates: start: 20240506, end: 20240508

REACTIONS (1)
  - Injection site irritation [Recovered/Resolved]

NARRATIVE: CASE EVENT DATE: 20240506
